FAERS Safety Report 8523009-5 (Version None)
Quarter: 2012Q3

REPORT INFORMATION
  Report Type: 
  Country: None (occurrence: None)
  Receive Date: 20120720
  Receipt Date: 20100920
  Transmission Date: 20120928
  Serious: Yes (Hospitalization, Other)
  Sender: FDA-Public Use
  Company Number: US-BAYER-201012541NA

PATIENT
  Age: 16 Year
  Sex: Female
  Weight: 71.818 kg

DRUGS (11)
  1. YAZ [Suspect]
     Indication: ACNE
  2. AMOXICILLIN [Concomitant]
     Route: 065
  3. CEFPROZIL [Concomitant]
     Route: 065
  4. PROMETHAZINE [Concomitant]
     Route: 065
     Dates: start: 20090817
  5. WARFARIN SODIUM [Concomitant]
     Route: 065
     Dates: start: 20081217, end: 20090429
  6. HYDROCODONE BITARTRATE AND ACETAMINOPHEN [Concomitant]
     Route: 065
     Dates: start: 20080512
  7. NSAID'S [Concomitant]
     Route: 065
  8. NAPROXEN [Concomitant]
  9. YAZ [Suspect]
     Indication: MENSTRUATION IRREGULAR
     Dosage: 1 DF (DAILY DOSE), QD, ORAL
     Route: 048
     Dates: start: 20080807, end: 20081210
  10. AZITHROMYCIN [Concomitant]
     Indication: MIGRAINE
     Route: 065
  11. NAPROSYN [Concomitant]
     Route: 065

REACTIONS (14)
  - SKIN DISCOLOURATION [None]
  - MUSCLE FATIGUE [None]
  - POST THROMBOTIC SYNDROME [None]
  - DISCOMFORT [None]
  - OEDEMA [None]
  - LOBAR PNEUMONIA [None]
  - DYSPNOEA [None]
  - MUSCULOSKELETAL PAIN [None]
  - PULMONARY EMBOLISM [None]
  - DEEP VEIN THROMBOSIS [None]
  - ARTHRALGIA [None]
  - OEDEMA PERIPHERAL [None]
  - PNEUMONIA BACTERIAL [None]
  - BODY TEMPERATURE INCREASED [None]
